FAERS Safety Report 5370407-7 (Version None)
Quarter: 2007Q2

REPORT INFORMATION
  Report Type: 
  Country: None (occurrence: None)
  Receive Date: 20070626
  Receipt Date: 20070215
  Transmission Date: 20071010
  Serious: No
  Sender: FDA-Public Use
  Company Number: US-AMGEN-US211312

PATIENT
  Sex: Female

DRUGS (9)
  1. ARANESP [Suspect]
     Indication: RENAL FAILURE CHRONIC
     Route: 065
     Dates: start: 20060928
  2. AMARYL [Concomitant]
     Route: 065
  3. METFORMIN HCL [Concomitant]
     Route: 065
  4. AVANDIA [Concomitant]
     Route: 065
  5. ZETIA [Concomitant]
     Route: 065
  6. ZOCOR [Concomitant]
     Route: 065
  7. TOPRAL [Concomitant]
     Route: 065
  8. PLAVIX [Concomitant]
     Route: 065
  9. ASPIRIN [Concomitant]
     Route: 065

REACTIONS (2)
  - GAIT DISTURBANCE [None]
  - HAEMOGLOBIN DECREASED [None]
